FAERS Safety Report 5487558-9 (Version None)
Quarter: 2007Q4

REPORT INFORMATION
  Report Type: 
  Country: None (occurrence: None)
  Receive Date: 20071015
  Receipt Date: 20071002
  Transmission Date: 20080405
  Serious: Yes (Disabling)
  Sender: FDA-Public Use
  Company Number: GXKR2007GB08522

PATIENT
  Age: 63 Year
  Sex: Male

DRUGS (13)
  1. BISOPROLOL FUMARATE [Suspect]
     Indication: PALPITATIONS
     Dosage: 5 MG, QD, ORAL
     Route: 048
     Dates: start: 20060728
  2. ACETYLSALICYLIC ACID SRT [Concomitant]
  3. AMLODIPINE [Concomitant]
  4. BENDROFLUMETHIAZIDE (BENDROFLUMETHIAZIDE) [Concomitant]
  5. CIMETIDINE [Concomitant]
  6. DOSULEPIN (DOSULEPIN) [Concomitant]
  7. INSULIN HUMAN (INSULIN HUMAN) [Concomitant]
  8. ISOPHANE INSULIN (ISOPHANE INSULIN) [Concomitant]
  9. MEBEVERINE HYDROCHLORIDE (MEBEVERINE HYDROCHLORIDE) [Concomitant]
  10. METFORMIN HCL [Concomitant]
  11. PANCREATIN TRIPLE STRENGTH CAP [Concomitant]
  12. PRAVASTATIN [Concomitant]
  13. RAMIPRIL [Concomitant]

REACTIONS (1)
  - DEAFNESS UNILATERAL [None]
